FAERS Safety Report 16171363 (Version 1)
Quarter: 2019Q2

REPORT INFORMATION
  Report Type: Spontaneous
  Country: US (occurrence: US)
  Receive Date: 20190408
  Receipt Date: 20190408
  Transmission Date: 20190711
  Serious: No
  Sender: FDA-Public Use
  Company Number: US-TARO-2019TAR00090

PATIENT
  Age: 71 Year
  Sex: Female
  Weight: 68.03 kg

DRUGS (16)
  1. METHOCARBAMOL. [Concomitant]
     Active Substance: METHOCARBAMOL
  2. SULFASALAZINE. [Concomitant]
     Active Substance: SULFASALAZINE
  3. LEXAPRO [Concomitant]
     Active Substance: ESCITALOPRAM OXALATE
  4. BUSPAR [Concomitant]
     Active Substance: BUSPIRONE HYDROCHLORIDE
  5. SPIRIVA [Concomitant]
     Active Substance: TIOTROPIUM BROMIDE MONOHYDRATE
  6. ADVAIR HFA [Concomitant]
     Active Substance: FLUTICASONE PROPIONATE\SALMETEROL XINAFOATE
  7. FLUOROURACIL TOPICAL CREAM USP 5% [Suspect]
     Active Substance: FLUOROURACIL
     Indication: PRECANCEROUS SKIN LESION
     Dosage: UNK
     Route: 061
  8. PLAQUENIL [Concomitant]
     Active Substance: HYDROXYCHLOROQUINE SULFATE
  9. FLUOROURACIL TOPICAL CREAM USP 5% [Suspect]
     Active Substance: FLUOROURACIL
     Dosage: UNK UNK, 2X/DAY
     Route: 061
     Dates: start: 20190121, end: 20190131
  10. LAMOTRIGINE. [Concomitant]
     Active Substance: LAMOTRIGINE
  11. SINGULAIR [Concomitant]
     Active Substance: MONTELUKAST SODIUM
  12. CLONAZEPAM. [Concomitant]
     Active Substance: CLONAZEPAM
  13. LEVOTHYROXINE. [Concomitant]
     Active Substance: LEVOTHYROXINE
  14. REMERON [Concomitant]
     Active Substance: MIRTAZAPINE
  15. GABAPENTIN. [Concomitant]
     Active Substance: GABAPENTIN
  16. PROGESTERONE. [Concomitant]
     Active Substance: PROGESTERONE

REACTIONS (3)
  - Drug ineffective [Recovered/Resolved]
  - Skin exfoliation [Recovered/Resolved]
  - Product quality issue [Recovered/Resolved]

NARRATIVE: CASE EVENT DATE: 20190121
